FAERS Safety Report 23898567 (Version 1)
Quarter: 2024Q2

REPORT INFORMATION
  Report Type: Spontaneous
  Country: US (occurrence: US)
  Receive Date: 20240525
  Receipt Date: 20240525
  Transmission Date: 20240716
  Serious: Yes (Hospitalization, Other)
  Sender: FDA-Public Use
  Company Number: US-UCBSA-2024024970

PATIENT
  Sex: Female

DRUGS (2)
  1. CIMZIA [Suspect]
     Active Substance: CERTOLIZUMAB PEGOL
     Indication: Crohn^s disease
     Dosage: 400 MILLIGRAM, EV 4 WEEKS
     Route: 058
     Dates: start: 202206
  2. CIMZIA [Suspect]
     Active Substance: CERTOLIZUMAB PEGOL
     Dosage: 800 MILLIGRAM, EV 4 WEEKS
     Route: 058
     Dates: start: 20240405

REACTIONS (5)
  - Crohn^s disease [Unknown]
  - Stress [Unknown]
  - Product use issue [Unknown]
  - Overdose [Unknown]
  - Inappropriate schedule of product administration [Unknown]

NARRATIVE: CASE EVENT DATE: 20240101
